FAERS Safety Report 7271574-0 (Version None)
Quarter: 2011Q1

REPORT INFORMATION
  Report Type: 
  Country: None (occurrence: None)
  Receive Date: 20110125
  Receipt Date: 20110125
  Transmission Date: 20110831
  Serious: Yes (Life-Threatening, Other)
  Sender: FDA-Public Use
  Company Number: None

PATIENT
  Age: 29 Year
  Sex: Female
  Weight: 45.3597 kg

DRUGS (3)
  1. CHLORDIAZEPOXIDE HCL W/ CLIDINIUM BROMIDE [Suspect]
     Indication: MUSCLE SPASMS
     Dosage: ONE THREE TIMES DAILY PO
     Route: 048
     Dates: start: 20110115, end: 20110122
  2. CHLORDIAZEPOXIDE HCL W/ CLIDINIUM BROMIDE [Suspect]
     Indication: IRRITABLE BOWEL SYNDROME
     Dosage: ONE THREE TIMES DAILY PO
     Route: 048
     Dates: start: 20110115, end: 20110122
  3. LIBRAX [Suspect]

REACTIONS (4)
  - DYSPNOEA [None]
  - PANIC ATTACK [None]
  - DRUG WITHDRAWAL SYNDROME [None]
  - PRODUCT SUBSTITUTION ISSUE [None]
